FAERS Safety Report 10688089 (Version 1)
Quarter: 2014Q4

REPORT INFORMATION
  Report Type: Spontaneous
  Country: US (occurrence: None)
  Receive Date: 20141231
  Receipt Date: 20141231
  Transmission Date: 20150529
  Serious: Yes (Hospitalization)
  Sender: FDA-Public Use
  Company Number: None

PATIENT
  Age: 71 Year
  Sex: Male
  Weight: 125.3 kg

DRUGS (1)
  1. METFORMIN [Suspect]
     Active Substance: METFORMIN HYDROCHLORIDE
     Indication: DIABETES MELLITUS
     Route: 048
     Dates: start: 20100711, end: 20140902

REACTIONS (6)
  - Dehydration [None]
  - Hyperkalaemia [None]
  - Atrial fibrillation [None]
  - Bradycardia [None]
  - Lactic acidosis [None]
  - Acute kidney injury [None]

NARRATIVE: CASE EVENT DATE: 20140902
